FAERS Safety Report 9309994 (Version 3)
Quarter: 2013Q3

REPORT INFORMATION
  Report Type: Spontaneous
  Country: US (occurrence: US)
  Receive Date: 20130527
  Receipt Date: 20130905
  Transmission Date: 20140515
  Serious: Yes (Hospitalization)
  Sender: FDA-Public Use
  Company Number: US-BIOGENIDEC-2013BI046519

PATIENT
  Age: 41 Year
  Sex: Female

DRUGS (4)
  1. AVONEX [Suspect]
     Indication: MULTIPLE SCLEROSIS
     Route: 030
     Dates: start: 20030322, end: 2003
  2. AVONEX [Suspect]
     Indication: MULTIPLE SCLEROSIS
     Route: 030
     Dates: start: 20130308
  3. AVONEX [Suspect]
     Indication: MULTIPLE SCLEROSIS
     Route: 030
     Dates: start: 20130703
  4. DILANTIN [Concomitant]
     Indication: CONVULSION PROPHYLAXIS
     Dates: start: 2012

REACTIONS (7)
  - Pneumonia aspiration [Recovered/Resolved]
  - Febrile convulsion [Recovered/Resolved]
  - Pyrexia [Recovered/Resolved]
  - Anticonvulsant drug level abnormal [Recovered/Resolved]
  - Tremor [Recovered/Resolved]
  - Lower extremity mass [Not Recovered/Not Resolved]
  - Fatigue [Recovered/Resolved]
